FAERS Safety Report 9458181 (Version 2)
Quarter: 2013Q3

REPORT INFORMATION
  Report Type: Spontaneous
  Country: US (occurrence: US)
  Receive Date: 20130814
  Receipt Date: 20130916
  Transmission Date: 20140515
  Serious: Yes (Other)
  Sender: FDA-Public Use
  Company Number: US-ELI_LILLY_AND_COMPANY-US201308001363

PATIENT
  Sex: Male
  Weight: 79.37 kg

DRUGS (2)
  1. STRATTERA [Suspect]
     Indication: DISTURBANCE IN ATTENTION
     Dosage: 40 MG, UNKNOWN
     Route: 048
     Dates: start: 20130725, end: 20130727
  2. STRATTERA [Suspect]
     Dosage: 80 MG, EACH MORNING
     Route: 048
     Dates: start: 20130728, end: 20130731

REACTIONS (11)
  - Urinary bladder haemorrhage [Recovered/Resolved]
  - Urinary straining [Recovered/Resolved]
  - Dysuria [Recovered/Resolved]
  - Dizziness [Recovered/Resolved]
  - Paraesthesia [Recovered/Resolved]
  - Disturbance in attention [Recovered/Resolved]
  - Libido decreased [Recovered/Resolved]
  - Drug ineffective [Recovered/Resolved]
  - Dry mouth [Recovered/Resolved]
  - Fatigue [Recovered/Resolved]
  - Urinary retention [Recovered/Resolved]
